FAERS Safety Report 21705879 (Version 1)
Quarter: 2022Q4

REPORT INFORMATION
  Report Type: Spontaneous
  Country: JP (occurrence: JP)
  Receive Date: 20221209
  Receipt Date: 20221209
  Transmission Date: 20230113
  Serious: Yes (Death, Other)
  Sender: FDA-Public Use
  Company Number: JP-GILEAD-2022-0608176

PATIENT
  Age: 77 Year
  Sex: Female

DRUGS (2)
  1. VEKLURY [Suspect]
     Active Substance: REMDESIVIR
     Indication: Product used for unknown indication
     Dosage: 200 MG
     Route: 065
     Dates: start: 20221123
  2. VEKLURY [Suspect]
     Active Substance: REMDESIVIR
     Dosage: 100 MG
     Route: 065
     Dates: start: 20221124, end: 20221127

REACTIONS (1)
  - Death [Fatal]

NARRATIVE: CASE EVENT DATE: 20221201
